FAERS Safety Report 12209305 (Version 2)
Quarter: 2016Q2

REPORT INFORMATION
  Report Type: Report from Study
  Country: AU (occurrence: AU)
  Receive Date: 20160324
  Receipt Date: 20160504
  Transmission Date: 20160815
  Serious: Yes (Hospitalization)
  Sender: FDA-Public Use
  Company Number: AU-ABBVIE-16P-008-1588947-00

PATIENT
  Age: 81 Year
  Sex: Male

DRUGS (2)
  1. DUODOPA [Suspect]
     Active Substance: CARBIDOPA\LEVODOPA
     Indication: PARKINSON^S DISEASE
     Dosage: 16 HOUR INFUSION
     Route: 050
     Dates: start: 20151027
  2. WARFARIN [Concomitant]
     Active Substance: WARFARIN
     Indication: PRODUCT USED FOR UNKNOWN INDICATION
     Dates: end: 20160319

REACTIONS (3)
  - International normalised ratio increased [Recovered/Resolved]
  - Skin cancer [Unknown]
  - Incision site haemorrhage [Unknown]

NARRATIVE: CASE EVENT DATE: 20160319
